FAERS Safety Report 5321409-8 (Version None)
Quarter: 2007Q2

REPORT INFORMATION
  Report Type: 
  Country: None (occurrence: None)
  Receive Date: 20070507
  Receipt Date: 20070507
  Transmission Date: 20071010
  Serious: Yes (Hospitalization)
  Sender: FDA-Public Use
  Company Number: None

PATIENT
  Age: 55 Year
  Sex: Male

DRUGS (1)
  1. PEG-INTRON [Suspect]
     Indication: HEPATITIS C
     Dosage: 180MCG    SQ
     Route: 058
     Dates: start: 20050722, end: 20060320

REACTIONS (2)
  - DIABETES MELLITUS [None]
  - NEUTROPENIA [None]
